FAERS Safety Report 10784880 (Version 1)
Quarter: 2015Q1

REPORT INFORMATION
  Report Type: Spontaneous
  Country: US (occurrence: US)
  Receive Date: 20150211
  Receipt Date: 20150211
  Transmission Date: 20150721
  Serious: No
  Sender: FDA-Public Use
  Company Number: US-GLAXOSMITHKLINE-A1060285A

PATIENT

DRUGS (5)
  1. DILANTIN [Concomitant]
     Active Substance: PHENYTOIN
  2. ONFI [Concomitant]
     Active Substance: CLOBAZAM
  3. LAMICTAL [Suspect]
     Active Substance: LAMOTRIGINE
     Indication: SEIZURE
     Route: 048
     Dates: start: 2009, end: 20140117
  4. VAGAL NERVE STIMULATOR [Concomitant]
  5. ZONEGRAN [Concomitant]
     Active Substance: ZONISAMIDE

REACTIONS (7)
  - Psychomotor hyperactivity [Unknown]
  - Aggression [Unknown]
  - Anxiety [Unknown]
  - Abnormal behaviour [Unknown]
  - Self-injurious ideation [Unknown]
  - Mania [Unknown]
  - Withdrawal syndrome [Unknown]

NARRATIVE: CASE EVENT DATE: 201312
